FAERS Safety Report 10241438 (Version 2)
Quarter: 2014Q2

REPORT INFORMATION
  Report Type: Report from Study
  Country: JP (occurrence: JP)
  Receive Date: 20140617
  Receipt Date: 20140617
  Transmission Date: 20141212
  Serious: Yes (Hospitalization)
  Sender: FDA-Public Use
  Company Number: JP-BAYER-2014-047461

PATIENT
  Age: 58 Year
  Sex: Male
  Weight: 171 kg

DRUGS (3)
  1. STIVARGA [Suspect]
     Indication: RECTAL CANCER
     Dosage: 160 MG, QD (3 WEEKS ON AND 1 WEEK OFF)
     Route: 048
     Dates: start: 20131018, end: 20140109
  2. STIVARGA [Suspect]
     Indication: RECTAL CANCER
     Dosage: 120 MG, QD
     Route: 048
     Dates: start: 20140116, end: 20140206
  3. STIVARGA [Suspect]
     Indication: RECTAL CANCER
     Dosage: 160 MG, QD (3 WEEKS ON AND 1 WEEK OFF)
     Route: 048
     Dates: end: 20140212

REACTIONS (22)
  - Aortic dissection [Recovering/Resolving]
  - Diarrhoea [Recovered/Resolved]
  - Blood bilirubin increased [Recovered/Resolved]
  - Hypoalbuminaemia [Recovered/Resolved]
  - Leukopenia [Recovered/Resolved]
  - Platelet count decreased [Recovered/Resolved]
  - Blood alkaline phosphatase increased [Recovering/Resolving]
  - Haemoglobin decreased [Recovered/Resolved]
  - Hypertension [Recovered/Resolved]
  - Hyperbilirubinaemia [Recovered/Resolved]
  - Aspartate aminotransferase increased [Recovered/Resolved]
  - Platelet count decreased [Recovered/Resolved]
  - Diarrhoea [Recovered/Resolved]
  - Decreased appetite [Not Recovered/Not Resolved]
  - Weight decreased [Not Recovered/Not Resolved]
  - Hypertension [Recovered/Resolved]
  - Cheilitis [Recovered/Resolved]
  - Cheilitis [Recovered/Resolved]
  - Anaemia [Recovering/Resolving]
  - Hypoalbuminaemia [Recovering/Resolving]
  - Hyperphosphatasaemia [Recovered/Resolved]
  - Blood lactate dehydrogenase increased [Recovered/Resolved]
